FAERS Safety Report 6733192-X (Version None)
Quarter: 2010Q2

REPORT INFORMATION
  Report Type: 
  Country: None (occurrence: None)
  Receive Date: 20100520
  Receipt Date: 20100511
  Transmission Date: 20101027
  Serious: Yes (Hospitalization)
  Sender: FDA-Public Use
  Company Number: US-BIOGENIDEC-2010BI015744

PATIENT
  Age: 46 Year
  Sex: Female

DRUGS (2)
  1. TYSABRI [Suspect]
     Indication: MULTIPLE SCLEROSIS
     Dates: start: 20061106, end: 20070627
  2. TYSABRI [Suspect]
     Dates: start: 20100218

REACTIONS (2)
  - MULTIPLE SCLEROSIS [None]
  - PAIN IN EXTREMITY [None]
